FAERS Safety Report 4385717-X (Version None)
Quarter: 2004Q2

REPORT INFORMATION
  Report Type: 
  Country: None (occurrence: None)
  Receive Date: 20040623
  Receipt Date: 20040402
  Transmission Date: 20050107
  Serious: Yes (Death, Life-Threatening)
  Sender: FDA-Public Use
  Company Number: 2004-114561-NL

PATIENT
  Age: 23 Year
  Sex: Female

DRUGS (22)
  1. DANAPAROID SODIUM [Suspect]
     Indication: DISSEMINATED INTRAVASCULAR COAGULATION
     Dosage: 2500 ANTI_XA
     Route: 042
     Dates: start: 20031101, end: 20031105
  2. SOLITA-T [Concomitant]
  3. VITAMEDIN [Concomitant]
  4. CARBAZOCHROME SODIUM SULFONATE [Concomitant]
  5. TRANEXAMIC ACID [Concomitant]
  6. RANITIDINE HYDROCHLORIDE [Concomitant]
  7. GLYCYRRHIZIC ACID, AMMONIUM SALT [Concomitant]
  8. PREDNISOLONE [Concomitant]
  9. IMMUNOGLOBULIN HUMAN NORMAL [Concomitant]
  10. GLUCOSE [Concomitant]
  11. SOLITA-T1 [Concomitant]
  12. NAFAMOSTAT MESILATE [Concomitant]
  13. MALTOSE [Concomitant]
  14. LACTEC [Concomitant]
  15. CALCIUM GLUCONATE [Concomitant]
  16. GLUCAGON [Concomitant]
  17. INSULIN HUMAN [Concomitant]
  18. METHYLPREDNISOLONE SODIUM SUCCINATE [Concomitant]
  19. FLUCONAZOLE [Concomitant]
  20. MAGNESIUM SULFATE [Concomitant]
  21. LOXOPROFEN SODIUM [Concomitant]
  22. REBAMIPIDE [Concomitant]

REACTIONS (1)
  - PULMONARY ALVEOLAR HAEMORRHAGE [None]
